FAERS Safety Report 6272248-5 (Version None)
Quarter: 2009Q3

REPORT INFORMATION
  Report Type: 
  Country: None (occurrence: None)
  Receive Date: 20090715
  Receipt Date: 20090702
  Transmission Date: 20100115
  Serious: Yes (Death)
  Sender: FDA-Public Use
  Company Number: 2008AL004157

PATIENT
  Age: 90 Year
  Sex: Female

DRUGS (1)
  1. DIGOXIN [Suspect]
     Indication: HEART RATE INCREASED
     Dosage: 0.125MG, PO
     Route: 048

REACTIONS (6)
  - CONTUSION [None]
  - DIZZINESS [None]
  - EMOTIONAL DISORDER [None]
  - FALL [None]
  - NAUSEA [None]
  - VERTIGO [None]
